FAERS Safety Report 4357099-0 (Version None)
Quarter: 2004Q2

REPORT INFORMATION
  Report Type: 
  Country: None (occurrence: None)
  Receive Date: 20040507
  Receipt Date: 20040428
  Transmission Date: 20050107
  Serious: Yes (Other)
  Sender: FDA-Public Use
  Company Number: PT-SHR-04-022094

PATIENT
  Age: 27 Year
  Sex: Female

DRUGS (1)
  1. BETAFERON (BETAFERON  BETA -1BVG) [Suspect]
     Dates: start: 20030728, end: 20030825

REACTIONS (2)
  - ARTHRALGIA [None]
  - BONE PAIN [None]
